FAERS Safety Report 4684986-6 (Version None)
Quarter: 2005Q2

REPORT INFORMATION
  Report Type: 
  Country: None (occurrence: None)
  Receive Date: 20050531
  Receipt Date: 20050304
  Transmission Date: 20051028
  Serious: No
  Sender: FDA-Public Use
  Company Number: WAES 0503USA00768

PATIENT
  Age: 54 Year
  Sex: Female

DRUGS (5)
  1. ZETIA [Suspect]
     Indication: BLOOD CHOLESTEROL INCREASED
     Dosage: 10 MG/DAILY/PO
     Route: 048
     Dates: start: 20040601, end: 20050101
  2. VYTORIN [Suspect]
     Dosage: UNK/UNK/PO
     Route: 048
     Dates: start: 20050101
  3. HYZAAR [Concomitant]
  4. HERBS (UNSPECIFIED) [Concomitant]
  5. VERAPAMIL HCL [Concomitant]

REACTIONS (2)
  - DRY EYE [None]
  - OCULAR HYPERAEMIA [None]
